FAERS Safety Report 10037499 (Version 1)
Quarter: 2014Q1

REPORT INFORMATION
  Report Type: Spontaneous
  Country: FI (occurrence: FI)
  Receive Date: 20140326
  Receipt Date: 20140326
  Transmission Date: 20141002
  Serious: Yes (Other)
  Sender: FDA-Public Use
  Company Number: FI-BAYER-2014-040739

PATIENT
  Sex: Female

DRUGS (1)
  1. CANESTEN KOMBI 500 MG + 10 MG/G TABLET [Suspect]

REACTIONS (5)
  - Urinary retention [None]
  - Genital burning sensation [None]
  - Genital pain [None]
  - Vulvovaginal disorder [None]
  - Insomnia [None]
